FAERS Safety Report 4535912-1 (Version None)
Quarter: 2004Q4

REPORT INFORMATION
  Report Type: 
  Country: None (occurrence: None)
  Receive Date: 20041223
  Receipt Date: 20041214
  Transmission Date: 20050328
  Serious: Yes (Other)
  Sender: FDA-Public Use
  Company Number: US-JNJFOC-20040502498

PATIENT
  Sex: Female
  Weight: 60.78 kg

DRUGS (40)
  1. REMICADE [Suspect]
     Route: 042
  2. REMICADE [Suspect]
     Route: 042
  3. REMICADE [Suspect]
     Route: 042
  4. REMICADE [Suspect]
     Route: 042
  5. REMICADE [Suspect]
     Route: 042
  6. REMICADE [Suspect]
     Route: 042
  7. REMICADE [Suspect]
     Indication: CROHN'S DISEASE
     Route: 042
  8. STEROIDS [Suspect]
     Indication: DRUG USE FOR UNKNOWN INDICATION
     Dosage: HIGH DOSE
  9. PREDNISONE [Suspect]
     Route: 049
  10. PREDNISONE [Suspect]
     Route: 049
  11. PREDNISONE [Suspect]
     Route: 049
  12. PREDNISONE [Suspect]
     Route: 049
  13. PREDNISONE [Suspect]
     Indication: DRUG USE FOR UNKNOWN INDICATION
     Route: 049
  14. LOVENOX [Concomitant]
     Indication: DRUG USE FOR UNKNOWN INDICATION
     Route: 050
  15. ALLERGY SHOTS [Concomitant]
  16. MULTIVITAMIN [Concomitant]
     Indication: DRUG USE FOR UNKNOWN INDICATION
  17. IRON [Concomitant]
     Indication: DRUG USE FOR UNKNOWN INDICATION
  18. METHOCARBANOL [Concomitant]
     Indication: DRUG USE FOR UNKNOWN INDICATION
  19. FEXOFENADINE [Concomitant]
     Indication: DRUG USE FOR UNKNOWN INDICATION
  20. CALCIUM [Concomitant]
     Indication: OSTEOPOROSIS
  21. RANITIDINE [Concomitant]
  22. ALUMINUM HYDROXIDE AND MAGNESIUM TRISILICATE [Concomitant]
  23. ALUMINUM HYDROXIDE AND MAGNESIUM TRISILICATE [Concomitant]
  24. PEPTO-BISMOL [Concomitant]
  25. TUMS [Concomitant]
     Indication: OSTEOPOROSIS
  26. TYLENOL (CAPLET) [Concomitant]
     Indication: PREMEDICATION
     Route: 049
  27. BENADRYL [Concomitant]
     Route: 049
  28. BENADRYL [Concomitant]
     Indication: PREMEDICATION
     Route: 049
  29. SOLU-MEDROL [Concomitant]
     Route: 040
  30. SOLU-MEDROL [Concomitant]
     Route: 040
  31. SOLU-MEDROL [Concomitant]
     Route: 040
  32. BENADRYL [Concomitant]
     Route: 040
  33. BENADRYL [Concomitant]
     Route: 040
  34. BENADRYL [Concomitant]
     Route: 040
  35. CLARITIN [Concomitant]
     Route: 049
  36. CLARITIN [Concomitant]
     Indication: PREMEDICATION
     Route: 049
  37. FOSAMAX [Concomitant]
     Indication: OSTEOPOROSIS
  38. OCUVITE [Concomitant]
  39. OCUVITE [Concomitant]
  40. OCUVITE [Concomitant]

REACTIONS (14)
  - ABDOMINAL DISCOMFORT [None]
  - ASTHENIA [None]
  - CATARACT [None]
  - CHEST PAIN [None]
  - CYSTITIS [None]
  - DECREASED APPETITE [None]
  - DIZZINESS [None]
  - INFUSION RELATED REACTION [None]
  - NAUSEA [None]
  - PRURITUS [None]
  - SERUM SICKNESS [None]
  - URTICARIA [None]
  - VISUAL ACUITY REDUCED [None]
  - WEIGHT DECREASED [None]
